FAERS Safety Report 6464347-X (Version None)
Quarter: 2009Q4

REPORT INFORMATION
  Report Type: 
  Country: None (occurrence: None)
  Receive Date: 20091201
  Receipt Date: 20091118
  Transmission Date: 20100525
  Serious: Yes (Other)
  Sender: FDA-Public Use
  Company Number: CA-ELI_LILLY_AND_COMPANY-CA200911004789

PATIENT
  Age: 13 Year
  Sex: Female
  Weight: 58.05 kg

DRUGS (1)
  1. STRATTERA [Suspect]
     Dosage: 95 MG, UNKNOWN
     Route: 065
     Dates: start: 20080101

REACTIONS (4)
  - CRYING [None]
  - DEPRESSED MOOD [None]
  - INTENTIONAL SELF-INJURY [None]
  - OVERDOSE [None]
